FAERS Safety Report 6354086-8 (Version None)
Quarter: 2009Q3

REPORT INFORMATION
  Report Type: 
  Country: None (occurrence: None)
  Receive Date: 20090914
  Receipt Date: 20090908
  Transmission Date: 20100115
  Serious: Yes (Disabling, Other)
  Sender: FDA-Public Use
  Company Number: US-ALLERGAN-0910839US

PATIENT
  Age: 62 Year
  Sex: Female

DRUGS (5)
  1. BOTOX COSMETIC [Suspect]
     Indication: SKIN WRINKLING
     Dosage: 100 UNITS, SINGLE
     Route: 030
     Dates: start: 20090622, end: 20090622
  2. BOTOX COSMETIC [Suspect]
     Dosage: 36 OR 56 UNITS, SINGLE
     Route: 030
     Dates: start: 20090709, end: 20090709
  3. BOTOX COSMETIC [Suspect]
     Dosage: UNK
     Route: 030
     Dates: start: 20080818, end: 20080818
  4. BOTOX COSMETIC [Suspect]
     Dosage: UNK
     Route: 030
     Dates: start: 20081101, end: 20081101
  5. BOTOX COSMETIC [Suspect]
     Dosage: UNK
     Route: 030
     Dates: start: 20090421, end: 20090421

REACTIONS (11)
  - BURNING SENSATION [None]
  - DEPRESSION [None]
  - DISTURBANCE IN ATTENTION [None]
  - EAR PAIN [None]
  - HYPOAESTHESIA [None]
  - INJECTION SITE HAEMATOMA [None]
  - INSOMNIA [None]
  - MULTIPLE SCLEROSIS [None]
  - PAIN [None]
  - PAIN IN EXTREMITY [None]
  - PARAESTHESIA [None]
